FAERS Safety Report 14314498 (Version 8)
Quarter: 2021Q4

REPORT INFORMATION
  Report Type: Spontaneous
  Country: BE (occurrence: BE)
  Receive Date: 20171221
  Receipt Date: 20211220
  Transmission Date: 20220303
  Serious: Yes (Death, Hospitalization, Disabling, Other)
  Sender: FDA-Public Use
  Company Number: PHHY2016BE185839

PATIENT
  Age: 84 Year
  Sex: Female

DRUGS (3)
  1. DEXAMETHASONE [Suspect]
     Active Substance: DEXAMETHASONE
     Indication: Plasma cell myeloma
     Dosage: 10 MG
     Route: 065
     Dates: start: 20160525
  2. DEXAMETHASONE [Suspect]
     Active Substance: DEXAMETHASONE
     Dosage: 10 MG
     Route: 065
     Dates: start: 20160601
  3. POMALIDOMIDE [Suspect]
     Active Substance: POMALIDOMIDE
     Indication: Plasma cell myeloma
     Dosage: 4 MG
     Route: 048
     Dates: start: 20160525, end: 20160606

REACTIONS (9)
  - Plasma cell myeloma [Fatal]
  - Neutropenia [Fatal]
  - Humerus fracture [Fatal]
  - Bone pain [Fatal]
  - Hip fracture [Fatal]
  - General physical health deterioration [Fatal]
  - Leukopenia [Fatal]
  - Neutropenia [Recovered/Resolved]
  - Neutropenia [Recovered/Resolved]

NARRATIVE: CASE EVENT DATE: 20160606
